FAERS Safety Report 8990039 (Version 1)
Quarter: 2012Q4

REPORT INFORMATION
  Report Type: 
  Country: NO (occurrence: NO)
  Receive Date: 20121228
  Receipt Date: 20121228
  Transmission Date: 20130627
  Serious: Yes (Other)
  Sender: FDA-Public Use
  Company Number: PHHY2009NO071569

PATIENT
  Age: 78 Year
  Sex: Female

DRUGS (2)
  1. ZOLPIDEM [Suspect]
  2. ZOLOFT [Suspect]

REACTIONS (7)
  - Hyperthermia malignant [Recovering/Resolving]
  - Delirium [Recovering/Resolving]
  - Fall [Recovering/Resolving]
  - Serotonin syndrome [Recovering/Resolving]
  - Hypokinesia [Recovering/Resolving]
  - Muscle spasms [Recovering/Resolving]
  - Loss of consciousness [Recovering/Resolving]
